FAERS Safety Report 14297258 (Version 2)
Quarter: 2018Q1

REPORT INFORMATION
  Report Type: Spontaneous
  Country: DE (occurrence: DE)
  Receive Date: 20171218
  Receipt Date: 20180131
  Transmission Date: 20180509
  Serious: Yes (Hospitalization)
  Sender: FDA-Public Use
  Company Number: DE-ABBVIE-17P-062-2195610-00

PATIENT
  Age: 38 Year
  Sex: Male
  Weight: 97 kg

DRUGS (5)
  1. ASPIRIN. [Concomitant]
     Active Substance: ASPIRIN
     Indication: SKIN ULCER
  2. ASPIRIN. [Concomitant]
     Active Substance: ASPIRIN
     Indication: POST THROMBOTIC SYNDROME
  3. MAVIRET [Suspect]
     Active Substance: GLECAPREVIR\PIBRENTASVIR
     Indication: CHRONIC HEPATITIS C
     Dosage: 100/40MG TABS
     Route: 048
     Dates: start: 20171026
  4. KETANOV [Concomitant]
     Active Substance: KETOROLAC\KETOROLAC TROMETHAMINE
     Indication: PRODUCT USED FOR UNKNOWN INDICATION
     Dosage: 1-2 TIMES PER WEEK
  5. IBUPROFEN. [Concomitant]
     Active Substance: IBUPROFEN
     Indication: PRODUCT USED FOR UNKNOWN INDICATION
     Dosage: 1-2 TIMES PER WEEK

REACTIONS (4)
  - Lymphadenopathy [Recovering/Resolving]
  - Abdominal pain lower [Recovering/Resolving]
  - Lymphadenitis [Recovering/Resolving]
  - Abdominal wall mass [Recovering/Resolving]

NARRATIVE: CASE EVENT DATE: 20171203
